FAERS Safety Report 20638862 (Version 1)
Quarter: 2022Q1

REPORT INFORMATION
  Report Type: Spontaneous
  Country: US (occurrence: US)
  Receive Date: 20220325
  Receipt Date: 20220325
  Transmission Date: 20220423
  Serious: Yes (Death, Other)
  Sender: FDA-Public Use
  Company Number: US-GILEAD-2022-0574626

PATIENT
  Age: 72 Year
  Sex: Male

DRUGS (10)
  1. REMDESIVIR [Suspect]
     Active Substance: REMDESIVIR
     Indication: COVID-19
     Dosage: UNK
     Route: 042
  2. BARICITINIB [Concomitant]
     Active Substance: BARICITINIB
  3. DEXAMETHASONE [Concomitant]
     Active Substance: DEXAMETHASONE
     Route: 042
  4. ENOXAPARIN [Concomitant]
     Active Substance: ENOXAPARIN
     Indication: Thrombosis prophylaxis
  5. SITAGLIPTIN [Concomitant]
     Active Substance: SITAGLIPTIN
  6. TAMSULOSIN [Concomitant]
     Active Substance: TAMSULOSIN
  7. FINASTERIDE [Concomitant]
     Active Substance: FINASTERIDE
  8. METFORMIN [Concomitant]
     Active Substance: METFORMIN HYDROCHLORIDE
  9. ASPIRIN [Concomitant]
     Active Substance: ASPIRIN
  10. ATORVASTATIN [Concomitant]
     Active Substance: ATORVASTATIN

REACTIONS (1)
  - Intestinal perforation [Fatal]
